FAERS Safety Report 9692683 (Version 2)
Quarter: 2013Q4

REPORT INFORMATION
  Report Type: Spontaneous
  Country: US (occurrence: US)
  Receive Date: 20131118
  Receipt Date: 20131209
  Transmission Date: 20140711
  Serious: Yes (Death)
  Sender: FDA-Public Use
  Company Number: PHEH2013US024022

PATIENT
  Sex: Male
  Weight: 48 kg

DRUGS (3)
  1. ZOMETA [Suspect]
     Indication: METASTASES TO BONE
     Dosage: UNK UKN, UNK
  2. ZOMETA [Suspect]
     Dosage: UNK UKN, UNK
     Dates: start: 20130821
  3. ZOMETA [Suspect]
     Dosage: UNK UKN, UNK
     Dates: start: 20130918

REACTIONS (5)
  - Lung neoplasm malignant [Fatal]
  - Metastases to central nervous system [Fatal]
  - Metastases to liver [Fatal]
  - Metastases to lymph nodes [Fatal]
  - Metastases to bone [Fatal]
